FAERS Safety Report 5386174-7 (Version None)
Quarter: 2007Q3

REPORT INFORMATION
  Report Type: 
  Country: None (occurrence: None)
  Receive Date: 20070711
  Receipt Date: 20070711
  Transmission Date: 20080115
  Serious: Yes (Life-Threatening, Disabling)
  Sender: FDA-Public Use
  Company Number: None

PATIENT
  Sex: Male
  Weight: 95.2554 kg

DRUGS (2)
  1. LANTUS [Suspect]
     Indication: TYPE 2 DIABETES MELLITUS
     Dosage: 20 UNITS 8:30 PM, DAILY INJECT
     Dates: start: 20070613
  2. LANTUS [Suspect]
     Indication: TYPE 2 DIABETES MELLITUS
     Dosage: 20 UNITS 8:30 PM, DAILY INJECT
     Dates: start: 20070614

REACTIONS (24)
  - ABDOMINAL PAIN UPPER [None]
  - ASTHENIA [None]
  - BACK PAIN [None]
  - BALANCE DISORDER [None]
  - BRAIN DAMAGE [None]
  - CHEST PAIN [None]
  - DRUG TOXICITY [None]
  - ERUCTATION [None]
  - FEELING ABNORMAL [None]
  - FLATULENCE [None]
  - HEADACHE [None]
  - HEART RATE ABNORMAL [None]
  - INSOMNIA [None]
  - MEMORY IMPAIRMENT [None]
  - MENTAL IMPAIRMENT [None]
  - MUSCULAR WEAKNESS [None]
  - NECK PAIN [None]
  - NEUROTOXICITY [None]
  - ORAL INTAKE REDUCED [None]
  - PSYCHOTIC DISORDER [None]
  - SCHIZOPHRENIFORM DISORDER [None]
  - STOMACH DISCOMFORT [None]
  - THERAPEUTIC PRODUCT CONTAMINATION [None]
  - TREMOR [None]
